FAERS Safety Report 14146649 (Version 1)
Quarter: 2017Q4

REPORT INFORMATION
  Report Type: Spontaneous
  Country: US (occurrence: US)
  Receive Date: 20171031
  Receipt Date: 20171031
  Transmission Date: 20180321
  Serious: No
  Sender: FDA-Public Use
  Company Number: US-PFIZER INC-2017461927

PATIENT
  Age: 14 Year
  Sex: Female
  Weight: 35.37 kg

DRUGS (9)
  1. INTUNIV [Concomitant]
     Active Substance: GUANFACINE HYDROCHLORIDE
     Dosage: UNK
  2. SYNTHROID [Concomitant]
     Active Substance: LEVOTHYROXINE SODIUM
     Dosage: 50 UG, DAILY
     Route: 048
  3. GENOTROPIN [Suspect]
     Active Substance: SOMATROPIN
     Dosage: 1.4 MG, DAILY
     Route: 058
     Dates: start: 20160429, end: 20160516
  4. GENOTROPIN [Suspect]
     Active Substance: SOMATROPIN
     Dosage: 1.6 MG, ALTERNATE DAY
     Route: 058
  5. INTUNIV [Concomitant]
     Active Substance: GUANFACINE HYDROCHLORIDE
     Dosage: 1 MG, DAILY
     Route: 048
  6. GENOTROPIN [Suspect]
     Active Substance: SOMATROPIN
     Dosage: UNK
     Route: 058
     Dates: start: 20170427, end: 20170428
  7. GENOTROPIN [Suspect]
     Active Substance: SOMATROPIN
     Indication: GROWTH HORMONE DEFICIENCY
     Dosage: 1.4 MG, DAILY
     Route: 058
     Dates: start: 2008
  8. GENOTROPIN [Suspect]
     Active Substance: SOMATROPIN
     Dosage: UNK
     Route: 058
     Dates: start: 20161107, end: 20170421
  9. STRATTERA [Concomitant]
     Active Substance: ATOMOXETINE HYDROCHLORIDE
     Dosage: 18 MG, 1X/DAY (1 CAP BY MOUTH EVERY MORNING)
     Route: 048

REACTIONS (6)
  - Constipation [Unknown]
  - Headache [Unknown]
  - Dry skin [Recovering/Resolving]
  - Condition aggravated [Unknown]
  - Rash [Recovering/Resolving]
  - Skin striae [Unknown]
